FAERS Safety Report 24306999 (Version 1)
Quarter: 2024Q3

REPORT INFORMATION
  Report Type: Spontaneous
  Country: US (occurrence: US)
  Receive Date: 20240911
  Receipt Date: 20240911
  Transmission Date: 20241017
  Serious: Yes (Death)
  Sender: NOVARTIS
  Company Number: US-002147023-NVSC2024US181261

PATIENT
  Age: 63 Year
  Sex: Female

DRUGS (1)
  1. LUTATHERA [Suspect]
     Active Substance: LUTETIUM OXODOTREOTIDE LU-177
     Indication: Small intestine neuroendocrine tumour
     Dosage: 7.4 MBQ, ONCE/SINGLE (VIAL)
     Route: 042
     Dates: start: 20240619, end: 20240619

REACTIONS (4)
  - Abdominal pain [Fatal]
  - Decreased appetite [Fatal]
  - Fatigue [Fatal]
  - Syncope [Fatal]
